FAERS Safety Report 4416421-7 (Version None)
Quarter: 2004Q3

REPORT INFORMATION
  Report Type: 
  Country: None (occurrence: None)
  Receive Date: 20040802
  Receipt Date: 20040716
  Transmission Date: 20050211
  Serious: Yes (Hospitalization)
  Sender: FDA-Public Use
  Company Number: 04P-087-0267399-00

PATIENT
  Age: 61 Year
  Sex: Male

DRUGS (18)
  1. ISOPTIN [Suspect]
     Indication: MYOCARDIAL ISCHAEMIA
     Dosage: 240 MG, 1 IN 1 D, PER ORAL
     Route: 048
     Dates: start: 20030701, end: 20031106
  2. ASPIRIN [Suspect]
     Indication: PROPHYLAXIS
     Dosage: 100 MG, 1 IN 1 D, PER ORAL
     Route: 048
     Dates: end: 20031030
  3. ASPIRIN [Suspect]
     Indication: SHUNT OCCLUSION
     Dosage: 100 MG, 1 IN 1 D, PER ORAL
     Route: 048
     Dates: end: 20031030
  4. TICLOPIDINE HCL [Suspect]
     Indication: PROPHYLAXIS
     Dosage: 200 MG, 1 IN 1 D, PER ORAL
     Route: 048
     Dates: end: 20031030
  5. TICLOPIDINE HCL [Suspect]
     Indication: SHUNT OCCLUSION
     Dosage: 200 MG, 1 IN 1 D, PER ORAL
     Route: 048
     Dates: end: 20031030
  6. EPOETIN BETA [Concomitant]
  7. HEPARIN [Concomitant]
  8. NAFAMOSTAT MESILATE [Concomitant]
  9. CALCIUM CARBONATE [Concomitant]
  10. SODIUM POLYSTYRENE SULFONATE [Concomitant]
  11. NICORANDIL [Concomitant]
  12. ROXATIDINE ACETTE HYDROCHLORIDE [Concomitant]
  13. SEVELAMER HYDROCHLORIDE [Concomitant]
  14. TRIAZOLAM [Concomitant]
  15. ETIZOLAM [Concomitant]
  16. ARPRINDINE HYDROCHLORIDE [Concomitant]
  17. METILDIGOXIN [Concomitant]
  18. SORBITOL [Concomitant]

REACTIONS (4)
  - CERVICAL MYELOPATHY [None]
  - DEPRESSED LEVEL OF CONSCIOUSNESS [None]
  - PLATELET AGGREGATION INHIBITION [None]
  - PYREXIA [None]
